FAERS Safety Report 10504563 (Version 1)
Quarter: 2014Q4

REPORT INFORMATION
  Report Type: Spontaneous
  Country: US (occurrence: None)
  Receive Date: 20141007
  Receipt Date: 20141007
  Transmission Date: 20150528
  Serious: Yes (Hospitalization)
  Sender: FDA-Public Use
  Company Number: None

PATIENT
  Age: 50 Year
  Sex: Male
  Weight: 98.6 kg

DRUGS (14)
  1. TRAMADOL [Concomitant]
     Active Substance: TRAMADOL
  2. MULTIVITAMIN [Concomitant]
     Active Substance: VITAMINS
  3. RIBAVIRIN. [Suspect]
     Active Substance: RIBAVIRIN
     Indication: HEPATITIS C
     Route: 048
     Dates: start: 20140324
  4. VITAMIN D3 [Concomitant]
     Active Substance: CHOLECALCIFEROL
  5. FUROSEMIDE. [Concomitant]
     Active Substance: FUROSEMIDE
  6. INSULIN LISPRO [Concomitant]
     Active Substance: INSULIN LISPRO
  7. WARFARIN [Concomitant]
     Active Substance: WARFARIN
  8. ONDANSETRON [Concomitant]
     Active Substance: ONDANSETRON
  9. SPIRONOLACTONE. [Concomitant]
     Active Substance: SPIRONOLACTONE
  10. HYDROXYZINE [Concomitant]
     Active Substance: HYDROXYZINE\HYDROXYZINE HYDROCHLORIDE
  11. INSULINE GLARGINE [Concomitant]
  12. PROPANOLOL [Concomitant]
     Active Substance: PROPRANOLOL HYDROCHLORIDE
  13. OMEPRAZOLE. [Concomitant]
     Active Substance: OMEPRAZOLE
  14. SOFOSBUVIR 400MG [Suspect]
     Active Substance: SOFOSBUVIR
     Indication: HEPATITIS C
     Dosage: 400MG  1 X DAILY  PO
     Route: 048
     Dates: start: 20140324

REACTIONS (1)
  - Campylobacter gastroenteritis [None]

NARRATIVE: CASE EVENT DATE: 20140710
